FAERS Safety Report 8088863-2 (Version None)
Quarter: 2012Q1

REPORT INFORMATION
  Report Type: 
  Country: None (occurrence: None)
  Receive Date: 20120128
  Receipt Date: 20110407
  Transmission Date: 20120608
  Serious: Yes (Hospitalization)
  Sender: FDA-Public Use
  Company Number: US-ABBOTT-11P-163-0717292-00

PATIENT
  Sex: Male

DRUGS (4)
  1. HUMIRA [Suspect]
     Indication: CROHN'S DISEASE
     Dosage: STARTER KIT, TOOK ALL 6 PENS ON THE FIRST DAY
     Route: 058
     Dates: start: 20110321, end: 20110321
  2. OMEPRAZOLE [Concomitant]
     Indication: PRODUCT USED FOR UNKNOWN INDICATION
  3. PAXIL [Concomitant]
     Indication: DEPRESSION
  4. DOXEPIN [Concomitant]
     Indication: DEPRESSION

REACTIONS (3)
  - INCORRECT DOSE ADMINISTERED [None]
  - CROHN'S DISEASE [None]
  - CYSTITIS [None]
